FAERS Safety Report 7905252-9 (Version None)
Quarter: 2011Q4

REPORT INFORMATION
  Report Type: 
  Country: None (occurrence: None)
  Receive Date: 20111109
  Receipt Date: 20111102
  Transmission Date: 20120403
  Serious: Yes (Hospitalization)
  Sender: FDA-Public Use
  Company Number: FR-GILEAD-2011-0042809

PATIENT
  Sex: Male

DRUGS (10)
  1. OMACOR                             /06312301/ [Concomitant]
     Indication: CARDIAC DISORDER
     Dosage: 1 DF, QD
  2. ASPIRIN [Concomitant]
     Indication: CARDIAC DISORDER
     Dosage: 75 MG, QD
  3. ATENOLOL [Concomitant]
     Indication: CARDIAC DISORDER
     Dosage: 50 MG, QD
  4. TRUVADA [Suspect]
     Indication: HIV INFECTION
     Dosage: 1 DF, QD
     Route: 048
     Dates: start: 20100101, end: 20110701
  5. HUMALOG [Concomitant]
     Indication: DIABETES MELLITUS
     Dosage: 6IU IN MORNING, 10IU IN EVENING, SINCE BEFORE 2009
     Route: 058
  6. FLAGYL [Concomitant]
     Indication: GASTRODUODENAL ULCER
  7. KALETRA [Concomitant]
     Indication: HIV INFECTION
     Dosage: 4 DF, QD
     Route: 048
     Dates: start: 20100101
  8. ROVAMYCINE                         /00074401/ [Concomitant]
     Indication: GASTRODUODENAL ULCER
  9. EMTRIVA [Suspect]
     Indication: HIV INFECTION
     Dosage: 200 MG, QD
     Route: 048
     Dates: start: 20110701, end: 20110901
  10. CRESTOR [Concomitant]
     Indication: CARDIAC DISORDER
     Dosage: 10 MG, QD

REACTIONS (4)
  - BLOOD CREATININE INCREASED [None]
  - ABDOMINAL PAIN [None]
  - NAUSEA [None]
  - DIARRHOEA [None]
